FAERS Safety Report 9418715 (Version 1)
Quarter: 2013Q3

REPORT INFORMATION
  Report Type: Spontaneous
  Country: CA (occurrence: CA)
  Receive Date: 20130725
  Receipt Date: 20130725
  Transmission Date: 20140515
  Serious: Yes (Life-Threatening, Other)
  Sender: FDA-Public Use
  Company Number: CA-ROCHE-640588

PATIENT
  Age: 49 Year
  Sex: Female

DRUGS (5)
  1. MYCOPHENOLATE MOFETIL [Suspect]
     Indication: SYSTEMIC LUPUS ERYTHEMATOSUS
     Route: 065
  2. PREDNISONE [Suspect]
     Indication: SYSTEMIC LUPUS ERYTHEMATOSUS
     Route: 065
  3. PREDNISONE [Suspect]
     Dosage: THRAPY DURATION WAS 4 MONTHS.
     Route: 065
  4. ACYCLOVIR [Concomitant]
     Route: 042
  5. ACYCLOVIR [Concomitant]
     Route: 048

REACTIONS (11)
  - Herpes zoster disseminated [Unknown]
  - Blister [Unknown]
  - Erythema [Unknown]
  - Neuralgia [Unknown]
  - Pyrexia [Unknown]
  - Rash [Unknown]
  - Rash pustular [Unknown]
  - Scab [Unknown]
  - Skin graft [Unknown]
  - Skin necrosis [Unknown]
  - Hypotension [Unknown]
